FAERS Safety Report 13106812 (Version 1)
Quarter: 2017Q1

REPORT INFORMATION
  Report Type: Not Available
  Country: FR (occurrence: FR)
  Receive Date: 20170111
  Receipt Date: 20170111
  Transmission Date: 20170428
  Serious: Yes (Death, Hospitalization)
  Sender: FDA-Public Use
  Company Number: FR-AKORN-47039

PATIENT
  Age: 73 Year
  Sex: Female

DRUGS (1)
  1. COSOPT [Suspect]
     Active Substance: DORZOLAMIDE HYDROCHLORIDE\TIMOLOL MALEATE

REACTIONS (3)
  - Acute kidney injury [Fatal]
  - Orthostatic hypotension [Fatal]
  - Fall [Fatal]

NARRATIVE: CASE EVENT DATE: 20151026
